FAERS Safety Report 18326282 (Version 8)
Quarter: 2022Q2

REPORT INFORMATION
  Report Type: Spontaneous
  Country: CA (occurrence: CA)
  Receive Date: 20200929
  Receipt Date: 20220527
  Transmission Date: 20220721
  Serious: Yes (Other)
  Sender: FDA-Public Use
  Company Number: CA-PFIZER INC-2020298528

PATIENT
  Age: 2 Year
  Sex: Female
  Weight: 14.8 kg

DRUGS (3)
  1. SOMATROPIN [Suspect]
     Active Substance: SOMATROPIN
     Indication: Prader-Willi syndrome
     Dosage: 0.3 MG, DAILY
     Route: 058
     Dates: start: 20200730
  2. SOMATROPIN [Suspect]
     Active Substance: SOMATROPIN
     Dosage: 0.3 MG, DAILY (DISCONTINUED)
     Route: 058
     Dates: start: 20200806
  3. SOMATROPIN [Suspect]
     Active Substance: SOMATROPIN
     Dosage: 400 MG, 1X/DAY
     Route: 058

REACTIONS (10)
  - Idiopathic intracranial hypertension [Unknown]
  - Haemorrhage [Not Recovered/Not Resolved]
  - Injection site pain [Unknown]
  - Mood altered [Unknown]
  - Irritability [Unknown]
  - Headache [Recovered/Resolved]
  - Pain in extremity [Recovered/Resolved]
  - Wrong technique in device usage process [Unknown]
  - Injection site bruising [Not Recovered/Not Resolved]
  - Off label use [Unknown]

NARRATIVE: CASE EVENT DATE: 20200730
